FAERS Safety Report 23073061 (Version 3)
Quarter: 2023Q4

REPORT INFORMATION
  Report Type: Report from Study
  Country: US (occurrence: US)
  Receive Date: 20231017
  Receipt Date: 20231023
  Transmission Date: 20240110
  Serious: Yes (Hospitalization, Other)
  Sender: FDA-Public Use
  Company Number: US-ABBVIE-5451524

PATIENT
  Age: 61 Year
  Sex: Male
  Weight: 83.914 kg

DRUGS (1)
  1. HUMIRA [Suspect]
     Active Substance: ADALIMUMAB
     Indication: Hidradenitis
     Dosage: FORM STRENGTH: 40 MG
     Route: 058
     Dates: start: 202208

REACTIONS (3)
  - Arterial injury [Recovering/Resolving]
  - Lower limb fracture [Recovering/Resolving]
  - Arteriovenous graft site infection [Recovered/Resolved]

NARRATIVE: CASE EVENT DATE: 20230730
